FAERS Safety Report 5749300-3 (Version None)
Quarter: 2008Q2

REPORT INFORMATION
  Report Type: 
  Country: None (occurrence: None)
  Receive Date: 20080527
  Receipt Date: 20080527
  Transmission Date: 20081010
  Serious: Yes (Other)
  Sender: FDA-Public Use
  Company Number: A0729553A

PATIENT
  Age: 20 Year
  Sex: Female
  Weight: 70.5 kg

DRUGS (2)
  1. ALLI [Suspect]
     Indication: DRUG USE FOR UNKNOWN INDICATION
     Route: 048
     Dates: start: 20080522
  2. NO CONCURRENT MEDICATIONS [Concomitant]

REACTIONS (3)
  - ANAL HAEMORRHAGE [None]
  - RECTAL DISCHARGE [None]
  - RECTAL HAEMORRHAGE [None]
